FAERS Safety Report 18001298 (Version 14)
Quarter: 2023Q2

REPORT INFORMATION
  Report Type: Report from Study
  Country: PA (occurrence: PA)
  Receive Date: 20200709
  Receipt Date: 20230617
  Transmission Date: 20230722
  Serious: Yes (Hospitalization, Other)
  Sender: FDA-Public Use
  Company Number: NVSC2020PA192133

PATIENT
  Age: 55 Year
  Sex: Male

DRUGS (11)
  1. SECUKINUMAB [Suspect]
     Active Substance: SECUKINUMAB
     Indication: Psoriasis
     Dosage: 300 MG, QMO (2 VIALS OF 150 MG)
     Route: 058
     Dates: start: 20200625
  2. SECUKINUMAB [Suspect]
     Active Substance: SECUKINUMAB
     Indication: Psoriatic arthropathy
     Dosage: 300 MG, QMO (BENEATH THE SKING, THROUGH INJECTION)
     Route: 058
  3. SECUKINUMAB [Suspect]
     Active Substance: SECUKINUMAB
     Dosage: 300 MG, QMO (BENEATH THE SKING, THROUGH INJECTION)
     Route: 058
  4. SECUKINUMAB [Suspect]
     Active Substance: SECUKINUMAB
     Dosage: 300 MG, QMO (BENEATH THE SKING, THROUGH INJECTION)
     Route: 058
  5. SECUKINUMAB [Suspect]
     Active Substance: SECUKINUMAB
     Dosage: 300 MG
     Route: 065
  6. SECUKINUMAB [Suspect]
     Active Substance: SECUKINUMAB
     Dosage: 300 MG, QMO
     Route: 058
  7. SECUKINUMAB [Suspect]
     Active Substance: SECUKINUMAB
     Dosage: 300 MG, QMO
     Route: 058
  8. OMEGA 3 [Concomitant]
     Active Substance: CAPSAICIN
     Indication: Product used for unknown indication
     Dosage: UNK
     Route: 065
  9. MAGNESIUM [Concomitant]
     Active Substance: MAGNESIUM
     Indication: Product used for unknown indication
     Dosage: UNK
     Route: 065
  10. VITAMIN B12 [Concomitant]
     Active Substance: CYANOCOBALAMIN
     Indication: Product used for unknown indication
     Dosage: UNK
     Route: 065
  11. CRESTOR [Concomitant]
     Active Substance: ROSUVASTATIN CALCIUM
     Indication: Product used for unknown indication
     Dosage: 40 MG
     Route: 065

REACTIONS (32)
  - Blood triglycerides increased [Recovered/Resolved]
  - Viral infection [Recovered/Resolved]
  - Toothache [Unknown]
  - Weight decreased [Unknown]
  - Peripheral swelling [Unknown]
  - Erythema [Unknown]
  - Inflammation [Recovering/Resolving]
  - Pruritus [Not Recovered/Not Resolved]
  - Gait disturbance [Not Recovered/Not Resolved]
  - Hypersensitivity [Not Recovered/Not Resolved]
  - Pain in extremity [Recovering/Resolving]
  - Throat irritation [Not Recovered/Not Resolved]
  - Asthenia [Not Recovered/Not Resolved]
  - Blood pressure increased [Recovering/Resolving]
  - SARS-CoV-2 test positive [Not Recovered/Not Resolved]
  - Urticaria [Not Recovered/Not Resolved]
  - Oedema peripheral [Recovering/Resolving]
  - Skin lesion [Unknown]
  - Contusion [Recovering/Resolving]
  - Muscular weakness [Recovering/Resolving]
  - Dry skin [Recovering/Resolving]
  - Malaise [Unknown]
  - Psoriasis [Unknown]
  - Injury [Unknown]
  - Pyrexia [Recovering/Resolving]
  - Myalgia [Unknown]
  - Oropharyngeal discomfort [Unknown]
  - Injection site swelling [Unknown]
  - Injection site pain [Recovering/Resolving]
  - Nasal congestion [Recovering/Resolving]
  - Nasopharyngitis [Unknown]
  - Drug ineffective [Not Recovered/Not Resolved]

NARRATIVE: CASE EVENT DATE: 20200627
